FAERS Safety Report 7290954-0 (Version None)
Quarter: 2011Q1

REPORT INFORMATION
  Report Type: 
  Country: None (occurrence: None)
  Receive Date: 20110214
  Receipt Date: 20110203
  Transmission Date: 20110831
  Serious: Yes (Hospitalization, Other)
  Sender: FDA-Public Use
  Company Number: CA-JNJFOC-20110202236

PATIENT
  Sex: Female

DRUGS (3)
  1. METHOTREXATE SODIUM [Concomitant]
  2. PREDNISONE [Concomitant]
  3. SIMPONI [Suspect]
     Indication: RHEUMATOID ARTHRITIS
     Route: 058

REACTIONS (2)
  - ARTHRODESIS [None]
  - RESPIRATORY DISORDER [None]
